FAERS Safety Report 5265847-0 (Version None)
Quarter: 2007Q1

REPORT INFORMATION
  Report Type: 
  Country: None (occurrence: None)
  Receive Date: 20070312
  Receipt Date: 20070312
  Transmission Date: 20070707
  Serious: Yes (Death)
  Sender: FDA-Public Use
  Company Number: None

PATIENT
  Age: 32 Year
  Weight: 54 kg

DRUGS (7)
  1. DIDANOSINE [Suspect]
     Indication: HIV INFECTION
     Dosage: 250 MG OD PO
     Route: 048
     Dates: start: 20060426, end: 20060821
  2. ATAZANAVIR SULFATE [Suspect]
     Indication: HIV INFECTION
     Dosage: 400 MG QD PO
     Route: 048
     Dates: start: 20060426, end: 20060821
  3. EMTRICITABINE [Suspect]
     Indication: HIV INFECTION
     Dosage: 200 MG OD PO
     Route: 048
     Dates: start: 20060426, end: 20060821
  4. CEFTRIAXONE [Concomitant]
  5. GENTAMICIN [Concomitant]
  6. BACTRIM [Concomitant]
  7. FERROUS SULFATE [Concomitant]

REACTIONS (3)
  - HEPATITIS [None]
  - PNEUMONIA BACTERIAL [None]
  - SEPSIS [None]
